FAERS Safety Report 21019043 (Version 2)
Quarter: 2022Q3

REPORT INFORMATION
  Report Type: Report from Study
  Country: US (occurrence: US)
  Receive Date: 20220628
  Receipt Date: 20220713
  Transmission Date: 20221027
  Serious: Yes (Other)
  Sender: FDA-Public Use
  Company Number: US-SEATTLE GENETICS-2022SGN05915

PATIENT
  Sex: Female

DRUGS (1)
  1. TUCATINIB [Suspect]
     Active Substance: TUCATINIB
     Indication: Breast cancer female
     Route: 065

REACTIONS (7)
  - Urinary retention [Unknown]
  - Terminal state [Unknown]
  - Peripheral swelling [Unknown]
  - Gait disturbance [Unknown]
  - Insomnia [Unknown]
  - Adverse drug reaction [Unknown]
  - Decreased appetite [Unknown]
